FAERS Safety Report 14182720 (Version 3)
Quarter: 2018Q2

REPORT INFORMATION
  Report Type: Spontaneous
  Country: NL (occurrence: NL)
  Receive Date: 20171113
  Receipt Date: 20180627
  Transmission Date: 20180711
  Serious: Yes (Other)
  Sender: FDA-Public Use
  Company Number: NL-MYLANLABS-2017M1071977

PATIENT
  Age: 21 Year
  Sex: Male

DRUGS (2)
  1. CALCITONIN SALMON MYLAN [Suspect]
     Active Substance: CALCITONIN SALMON
     Indication: BONE GIANT CELL TUMOUR BENIGN
     Dosage: 100 IU, QD
     Route: 058
  2. CALCITONIN SALMON MYLAN [Suspect]
     Active Substance: CALCITONIN SALMON
     Indication: BONE GIANT CELL TUMOUR BENIGN
     Dosage: 100 OT (IE), QD
     Route: 058

REACTIONS (3)
  - Product use in unapproved indication [Unknown]
  - Bone giant cell tumour benign [Unknown]
  - Disease progression [Unknown]
